FAERS Safety Report 5572737-2 (Version None)
Quarter: 2007Q4

REPORT INFORMATION
  Report Type: 
  Country: None (occurrence: None)
  Receive Date: 20071130
  Receipt Date: 20061215
  Transmission Date: 20080405
  Serious: Yes (Other)
  Sender: FDA-Public Use
  Company Number: WAES 0606USA00697

PATIENT
  Age: 76 Year
  Sex: Female

DRUGS (6)
  1. FOSAMAX [Suspect]
     Indication: OSTEOPOROSIS
     Dosage: 70 MG/WKY/PO
     Route: 048
     Dates: start: 20010327, end: 20051219
  2. INDERAL [Concomitant]
  3. [THERAPY UNSPECIFIED] [Concomitant]
  4. FOLIC ACID [Concomitant]
  5. PREDNISONE TAB [Concomitant]
  6. WARFARIN SODIUM [Concomitant]

REACTIONS (5)
  - ABDOMINAL DISTENSION [None]
  - OSTEONECROSIS [None]
  - POLLAKIURIA [None]
  - PRURITUS [None]
  - PURPURA SENILE [None]
